FAERS Safety Report 5454189-6 (Version None)
Quarter: 2007Q3

REPORT INFORMATION
  Report Type: 
  Country: None (occurrence: None)
  Receive Date: 20070917
  Receipt Date: 20070905
  Transmission Date: 20080115
  Serious: Yes (Death, Hospitalization)
  Sender: FDA-Public Use
  Company Number: US-SHR-US-2007-028055

PATIENT
  Age: 65 Year
  Sex: Female

DRUGS (2)
  1. BETASERON [Suspect]
     Indication: SECONDARY PROGRESSIVE MULTIPLE SCLEROSIS
     Dosage: UNK, UNK
     Route: 058
     Dates: start: 20060102, end: 20070123
  2. BETASERON [Suspect]
     Dosage: 8 MIU, EVERY 2D
     Route: 058
     Dates: start: 20070129, end: 20070518

REACTIONS (2)
  - MULTIPLE SCLEROSIS [None]
  - PNEUMONIA ASPIRATION [None]
